FAERS Safety Report 17361703 (Version 3)
Quarter: 2020Q1

REPORT INFORMATION
  Report Type: Spontaneous
  Country: FR (occurrence: DE)
  Receive Date: 20200203
  Receipt Date: 20200210
  Transmission Date: 20200409
  Serious: Yes (Hospitalization)
  Sender: FDA-Public Use
  Company Number: DE-ABBVIE-20K-062-3261582-00

PATIENT
  Age: 15 Year
  Sex: Female
  Weight: 59 kg

DRUGS (1)
  1. ADALIMUMAB [Suspect]
     Active Substance: ADALIMUMAB
     Indication: CROHN^S DISEASE
     Route: 058
     Dates: start: 20190814

REACTIONS (9)
  - Cardiovascular disorder [Recovered/Resolved]
  - Tremor [Recovered/Resolved]
  - Hypoacusis [Unknown]
  - Dehydration [Recovered/Resolved]
  - Visual impairment [Unknown]
  - Syncope [Unknown]
  - Vomiting [Recovered/Resolved]
  - Hypotension [Recovered/Resolved]
  - Asthenia [Unknown]

NARRATIVE: CASE EVENT DATE: 20200127
